FAERS Safety Report 20735563 (Version 1)
Quarter: 2022Q2

REPORT INFORMATION
  Report Type: Report from Study
  Country: AU (occurrence: AU)
  Receive Date: 20220421
  Receipt Date: 20220421
  Transmission Date: 20220721
  Serious: Yes (Death, Other)
  Sender: FDA-Public Use
  Company Number: AU-CELGENE-AUS-20211100238

PATIENT
  Sex: Male

DRUGS (23)
  1. ENASIDENIB [Suspect]
     Active Substance: ENASIDENIB
     Indication: Acute myeloid leukaemia
     Dosage: 100 MILLIGRAM
     Route: 048
     Dates: start: 20210618, end: 20210718
  2. ENASIDENIB [Suspect]
     Active Substance: ENASIDENIB
     Dosage: 100 MILLIGRAM
     Route: 048
     Dates: start: 20210719, end: 20210901
  3. CYTARABINE [Suspect]
     Active Substance: CYTARABINE
     Indication: Acute myeloid leukaemia
     Dosage: 3280 MILLIGRAM
     Route: 065
     Dates: start: 20210618, end: 20210620
  4. CYTARABINE [Suspect]
     Active Substance: CYTARABINE
     Dosage: 3280 MILLIGRAM
     Route: 065
     Dates: start: 20210719, end: 20210721
  5. MYCOPHENOLIC ACID [Concomitant]
     Active Substance: MYCOPHENOLIC ACID
     Indication: Product used for unknown indication
     Dosage: FREQUENCY TEXT: TWO LABELS THREE TIMES DAILY
     Route: 065
     Dates: start: 20210913
  6. TACROLIMUS [Concomitant]
     Active Substance: TACROLIMUS
     Indication: Product used for unknown indication
     Dosage: FREQUENCY TEXT: NOT PROVIDED?1MG IN THE MORNING AND 0.5 MG IN THE AFTERNOON
     Route: 065
     Dates: start: 20210913
  7. PENTAMIDINE [Concomitant]
     Active Substance: PENTAMIDINE
     Indication: Product used for unknown indication
     Dosage: 300 MILLIGRAM
     Route: 042
     Dates: start: 20210902
  8. POSACONAZOLE [Concomitant]
     Active Substance: POSACONAZOLE
     Indication: Product used for unknown indication
     Dosage: 100 MILLIGRAM. 3 IN 1 DAY.
     Route: 048
     Dates: start: 20210913
  9. URSODIOL [Concomitant]
     Active Substance: URSODIOL
     Indication: Product used for unknown indication
     Dosage: 250 MILLIGRAM. 3 IN 1 DAY.
     Route: 065
     Dates: start: 20210901
  10. VALACYCLOVIR [Concomitant]
     Active Substance: VALACYCLOVIR HYDROCHLORIDE
     Indication: Product used for unknown indication
     Dosage: 500 MILLIGRAM. 2 IN 1 DAY.
     Route: 065
     Dates: start: 20210430
  11. Dermaveen [Concomitant]
     Indication: Dry skin
     Dosage: 2 IN 1 DAY.
     Route: 061
     Dates: start: 20210915
  12. ENTECAVIR [Concomitant]
     Active Substance: ENTECAVIR
     Indication: Product used for unknown indication
     Dosage: .5 MILLIGRAM. 2 IN 1 DAY.
     Route: 065
     Dates: start: 20210423
  13. PROCTOSEDYL [Concomitant]
     Active Substance: DIBUCAINE HYDROCHLORIDE\HYDROCORTISONE
     Indication: Product used for unknown indication
     Dosage: APPLY TO ANAL AREA. 3 IN 1 DAY.
     Route: 061
     Dates: start: 20211001
  14. MAGNESIUM [Concomitant]
     Active Substance: MAGNESIUM
     Indication: Product used for unknown indication
     Dosage: 500 MILLIGRAM. 2 IN 1 DAY.
     Route: 061
     Dates: start: 20210917
  15. PREGABALIN [Concomitant]
     Active Substance: PREGABALIN
     Indication: Product used for unknown indication
     Dosage: 150 MILLIGRAM. 2 IN 1 DAY.
     Route: 061
  16. LORATADINE [Concomitant]
     Active Substance: LORATADINE
     Indication: Pruritus
     Dosage: FREQUENCY TEXT: DAILY ASD NEEDED
     Route: 065
     Dates: start: 20210918
  17. ACETAMINOPHEN [Concomitant]
     Active Substance: ACETAMINOPHEN
     Indication: Pain
     Dosage: FREQUENCY TEXT: TWO TABLES UP TO FOUR TIMES DAILY AS NEE
     Route: 048
     Dates: start: 20210918
  18. FILGRASTIM [Concomitant]
     Active Substance: FILGRASTIM
     Indication: Wound
     Dosage: FREQUENCY TEXT: NOT PROVIDED?300UG
     Route: 065
     Dates: start: 20211011
  19. SODIUM PHOSPHATE, MONOBASIC [Concomitant]
     Active Substance: SODIUM PHOSPHATE, MONOBASIC
     Indication: Product used for unknown indication
     Dosage: 1000 MILLIGRAM. 2 IN 1 DAY.
     Route: 048
     Dates: start: 20211011
  20. PIPERACILLIN SODIUM\TAZOBACTAM SODIUM [Concomitant]
     Active Substance: PIPERACILLIN SODIUM\TAZOBACTAM SODIUM
     Indication: Product used for unknown indication
     Dosage: 4.0/0.5 G
     Route: 042
     Dates: start: 20211011
  21. POTASSIUM CHLORIDE [Concomitant]
     Active Substance: POTASSIUM CHLORIDE
     Indication: Product used for unknown indication
     Dosage: 28 MILLIMOLE. 2 IN 1 DAY.
     Route: 048
     Dates: start: 20211011
  22. SLOW-K [Concomitant]
     Active Substance: POTASSIUM CHLORIDE
     Indication: Product used for unknown indication
     Dosage: 1200 MILLIGRAM. 2 IN 1 DAY.
     Route: 048
     Dates: start: 20211011
  23. GANCICLOVIR [Concomitant]
     Active Substance: GANCICLOVIR
     Indication: Cytomegalovirus infection reactivation
     Dosage: FREQUENCY TEXT: NOT PROVIDED
     Route: 065

REACTIONS (1)
  - Haemophagocytic lymphohistiocytosis [Fatal]

NARRATIVE: CASE EVENT DATE: 20211011
